FAERS Safety Report 4290483-2 (Version None)
Quarter: 2004Q1

REPORT INFORMATION
  Report Type: 
  Country: None (occurrence: None)
  Receive Date: 20040209
  Receipt Date: 20040129
  Transmission Date: 20041129
  Serious: Yes (Disabling)
  Sender: FDA-Public Use
  Company Number: UK0605514

PATIENT
  Age: 72 Year
  Sex: Male
  Weight: 77 kg

DRUGS (7)
  1. ARANESP [Suspect]
     Indication: RENAL FAILURE CHRONIC
     Dosage: 50 MCG, EVERY 2 WEEKS, SC
     Route: 058
     Dates: start: 20030228
  2. SIMVASTATIN [Concomitant]
  3. ASPIRIN [Concomitant]
  4. FUROSEMIDE [Concomitant]
  5. SPIRONOLACTONE [Concomitant]
  6. BISOPROLOL [Concomitant]
  7. DIGOXIN [Concomitant]

REACTIONS (1)
  - HOARSENESS [None]
